FAERS Safety Report 4701055-7 (Version None)
Quarter: 2005Q2

REPORT INFORMATION
  Report Type: 
  Country: None (occurrence: None)
  Receive Date: 20050628
  Receipt Date: 20050616
  Transmission Date: 20051028
  Serious: Yes (Other)
  Sender: FDA-Public Use
  Company Number: US-JNJFOC-20040405322

PATIENT
  Sex: Female
  Weight: 77.11 kg

DRUGS (7)
  1. REMICADE [Suspect]
     Dosage: DOSE #7
     Route: 042
  2. REMICADE [Suspect]
     Route: 042
  3. REMICADE [Suspect]
     Route: 042
  4. REMICADE [Suspect]
     Indication: RHEUMATOID ARTHRITIS
     Route: 042
  5. IMURAN [Concomitant]
  6. BENADRYL [Concomitant]
     Indication: PREMEDICATION
     Route: 042
  7. SOLU-MEDROL [Concomitant]
     Indication: PREMEDICATION
     Route: 042

REACTIONS (7)
  - ANGIONEUROTIC OEDEMA [None]
  - DYSPNOEA [None]
  - ERYTHEMA [None]
  - FEELING ABNORMAL [None]
  - INFUSION RELATED REACTION [None]
  - RASH [None]
  - WHEEZING [None]
